FAERS Safety Report 7267597-8 (Version None)
Quarter: 2011Q1

REPORT INFORMATION
  Report Type: 
  Country: None (occurrence: None)
  Receive Date: 20110121
  Receipt Date: 20110112
  Transmission Date: 20110831
  Serious: Yes (Other)
  Sender: FDA-Public Use
  Company Number: US-1184635

PATIENT
  Sex: Female

DRUGS (3)
  1. DITROPAN [Concomitant]
  2. SYSTANE EYE DROPS [Suspect]
     Dosage: OPHTHALMIC
     Route: 047
  3. CARDIAC THERAPY [Concomitant]

REACTIONS (1)
  - DIPLOPIA [None]
